FAERS Safety Report 8510944-7 (Version None)
Quarter: 2012Q2

REPORT INFORMATION
  Report Type: 
  Country: None (occurrence: None)
  Receive Date: 20120406
  Receipt Date: 20111229
  Transmission Date: 20120825
  Serious: Yes (Hospitalization)
  Sender: FDA-Public Use
  Company Number: US-CYPR-2011-000083

PATIENT
  Sex: Female
  Weight: 98.8842 kg

DRUGS (11)
  1. PRASUGREL OR PLACEBO (10 MG, 10 MG) (ELI LILLY) [Suspect]
     Indication: ANTIPLATELET THERAPY
     Dosage: 10 MG QD ORAL
     Route: 048
     Dates: start: 20110407, end: 20111218
  2. PRASUGREL OR PLACEBO (10 MG, 10 MG) (ELI LILLY) [Suspect]
     Indication: ANTIPLATELET THERAPY
     Dosage: 10 MG QD ORAL
     Route: 048
     Dates: start: 20120107
  3. LOPRESSOR [Concomitant]
  4. LISINOPRIL [Concomitant]
  5. PROZAC [Concomitant]
  6. METFORMIN HCL [Concomitant]
  7. NOVOLIN 70/30 [Concomitant]
  8. PRAVACHOL [Concomitant]
  9. ASPIRIN [Suspect]
     Indication: CORONARY ARTERY DISEASE
     Dosage: 81 MG QD ORAL
     Route: 048
     Dates: start: 20120106
  10. ASPIRIN [Suspect]
     Indication: CORONARY ARTERY DISEASE
     Dosage: 81 MG QD ORAL
     Route: 048
     Dates: start: 20070101, end: 20111218
  11. LASIX [Concomitant]

REACTIONS (1)
  - HIP FRACTURE [None]
